FAERS Safety Report 5470212-7 (Version None)
Quarter: 2007Q3

REPORT INFORMATION
  Report Type: 
  Country: None (occurrence: None)
  Receive Date: 20070924
  Receipt Date: 20070910
  Transmission Date: 20080115
  Serious: Yes (Other)
  Sender: FDA-Public Use
  Company Number: 2007-03797

PATIENT
  Sex: Female

DRUGS (4)
  1. LORAZEPAM [Suspect]
     Indication: ANXIETY
  2. LORAZEPAM [Suspect]
     Indication: CONVULSION
  3. LORAZEPAM [Suspect]
     Indication: MUSCLE RELAXANT THERAPY
  4. LORAZEPAM [Suspect]
     Indication: PANIC ATTACK

REACTIONS (14)
  - BLOOD SODIUM INCREASED [None]
  - CONSTIPATION [None]
  - CONVULSION [None]
  - DEAFNESS [None]
  - DRUG INEFFECTIVE [None]
  - FLUID RETENTION [None]
  - GASTROINTESTINAL OBSTRUCTION [None]
  - HYPERTENSION [None]
  - INFLAMMATION [None]
  - MIDDLE EAR EFFUSION [None]
  - MUSCLE DISORDER [None]
  - MUSCLE SPASMS [None]
  - PHARMACEUTICAL PRODUCT COMPLAINT [None]
  - SOMNOLENCE [None]
